FAERS Safety Report 7397451-2 (Version None)
Quarter: 2011Q2

REPORT INFORMATION
  Report Type: 
  Country: None (occurrence: None)
  Receive Date: 20110401
  Receipt Date: 20110401
  Transmission Date: 20111010
  Serious: Yes (Death)
  Sender: FDA-Public Use
  Company Number: None

PATIENT
  Sex: Female

DRUGS (1)
  1. TYSABRI 300MG/15ML VIAL BIOGEN LABS [Suspect]
     Indication: MULTIPLE SCLEROSIS
     Dosage: 300MG EVERY 4 WEEKS IV
     Route: 042
     Dates: start: 20100310, end: 20110311

REACTIONS (1)
  - DEATH [None]
